FAERS Safety Report 10626001 (Version 1)
Quarter: 2014Q4

REPORT INFORMATION
  Report Type: Spontaneous
  Country: US (occurrence: US)
  Receive Date: 20141204
  Receipt Date: 20141204
  Transmission Date: 20150529
  Serious: Yes (Hospitalization, Disabling)
  Sender: FDA-Public Use
  Company Number: US-B.I. PHARMACEUTICALS,INC./RIDGEFIELD-2014-BI-58117BP

PATIENT
  Age: 66 Year
  Sex: Male

DRUGS (3)
  1. PRADAXA [Suspect]
     Active Substance: DABIGATRAN ETEXILATE MESYLATE
     Indication: ATRIAL FIBRILLATION
     Dosage: 300 MG
     Route: 048
     Dates: start: 2011, end: 201409
  2. MULTAQ [Concomitant]
     Active Substance: DRONEDARONE
     Indication: PRODUCT USED FOR UNKNOWN INDICATION
     Route: 065
  3. CLONAZAPAM [Concomitant]
     Indication: PRODUCT USED FOR UNKNOWN INDICATION
     Route: 065

REACTIONS (3)
  - Pulmonary haemorrhage [Recovered/Resolved]
  - Blindness [Recovered/Resolved with Sequelae]
  - Retinal haemorrhage [Recovered/Resolved with Sequelae]

NARRATIVE: CASE EVENT DATE: 2014
